FAERS Safety Report 24978577 (Version 1)
Quarter: 2025Q1

REPORT INFORMATION
  Report Type: Spontaneous
  Country: BR (occurrence: BR)
  Receive Date: 20250218
  Receipt Date: 20250218
  Transmission Date: 20250409
  Serious: Yes (Other)
  Sender: NOVO NORDISK
  Company Number: BR-NOVOPROD-1368154

PATIENT
  Age: 43 Year
  Sex: Female

DRUGS (6)
  1. WEGOVY [Suspect]
     Active Substance: SEMAGLUTIDE
     Indication: Obesity
     Dates: start: 202404, end: 2024
  2. WEGOVY [Suspect]
     Active Substance: SEMAGLUTIDE
     Indication: Metabolic dysfunction-associated steatohepatitis
  3. WEGOVY [Suspect]
     Active Substance: SEMAGLUTIDE
     Indication: Obesity
     Dates: start: 202411
  4. WEGOVY [Suspect]
     Active Substance: SEMAGLUTIDE
     Indication: Metabolic dysfunction-associated steatohepatitis
  5. WEGOVY [Suspect]
     Active Substance: SEMAGLUTIDE
     Indication: Metabolic dysfunction-associated steatohepatitis
  6. WEGOVY [Suspect]
     Active Substance: SEMAGLUTIDE
     Indication: Obesity
     Dates: start: 20250129, end: 20250130

REACTIONS (5)
  - Injury [Unknown]
  - Malaise [Unknown]
  - Fall [Unknown]
  - Abdominal discomfort [Unknown]
  - Wrong technique in product usage process [Recovered/Resolved]

NARRATIVE: CASE EVENT DATE: 20240101
